FAERS Safety Report 9394983 (Version 1)
Quarter: 2013Q3

REPORT INFORMATION
  Report Type: Spontaneous
  Country: GB (occurrence: GB)
  Receive Date: 20130711
  Receipt Date: 20130711
  Transmission Date: 20140515
  Serious: Yes (Other)
  Sender: FDA-Public Use
  Company Number: GB-SANOFI-AVENTIS-2013SA068027

PATIENT
  Age: 20 Year
  Sex: Male
  Weight: 98 kg

DRUGS (1)
  1. FEXOFENADINE HYDROCHLORIDE [Suspect]
     Indication: SEASONAL ALLERGY
     Route: 048
     Dates: start: 20130604, end: 20130610

REACTIONS (1)
  - Mouth ulceration [Recovered/Resolved]
